FAERS Safety Report 4716821-1 (Version None)
Quarter: 2005Q3

REPORT INFORMATION
  Report Type: 
  Country: None (occurrence: None)
  Receive Date: 20050714
  Receipt Date: 20050622
  Transmission Date: 20060218
  Serious: Yes (Other)
  Sender: FDA-Public Use
  Company Number: 215949

PATIENT
  Age: 61 Year
  Sex: Male
  Weight: 79 kg

DRUGS (11)
  1. MABTHERA (RITUXIMAB) CONC FOR SOLUTION FOR INFUSION [Suspect]
     Indication: LYMPHOMA
     Dosage: 700 MG, Q28D, INTRAVENOUS
     Route: 042
     Dates: start: 20050419, end: 20050607
  2. FLUDARABINE PHOSPHATE [Suspect]
     Indication: LYMPHOMA
     Dosage: 48 MG, Q28D, INTRAVENEOUS
     Route: 042
     Dates: start: 20050412, end: 20050610
  3. MITOXANTRONE [Suspect]
     Indication: LYMPHOMA
     Dosage: 19 MG, Q28D, INTRAVENOUS
     Route: 042
     Dates: start: 20050412, end: 20050608
  4. DEXAMETHASONE [Suspect]
     Indication: LYMPHOMA
     Dosage: 10 MG, Q28D, INTRAVENOUS
     Route: 042
     Dates: start: 20050412, end: 20050610
  5. SULFAMETHOXAZOLE + TRIMETHOPRIM [Concomitant]
  6. WARFARIN SODIUM [Concomitant]
  7. DELORAZEPAM (DELORAZEPAM) [Concomitant]
  8. AMIODARONE (AMIODARONE HYDROCHLORIDE) [Concomitant]
  9. LOSARTAN (LOSARTAN POTASSIUM) [Concomitant]
  10. CIPROFLOXACINE (CIPROFLOXACIN) [Concomitant]
  11. ITRACONAZOLE [Concomitant]

REACTIONS (2)
  - LEUKOPENIA [None]
  - NEUTROPENIA [None]
